FAERS Safety Report 5490769-X (Version None)
Quarter: 2007Q4

REPORT INFORMATION
  Report Type: 
  Country: None (occurrence: None)
  Receive Date: 20071019
  Receipt Date: 20071008
  Transmission Date: 20080405
  Serious: Yes (Congenital Anomaly)
  Sender: FDA-Public Use
  Company Number: US-AMGEN-US246916

PATIENT

DRUGS (5)
  1. ENBREL [Suspect]
     Indication: PSORIASIS
     Route: 064
     Dates: start: 20061108, end: 20070302
  2. PREDNISONE [Concomitant]
     Route: 048
     Dates: start: 20070228, end: 20070314
  3. AZITHROMYCIN [Concomitant]
     Route: 048
     Dates: start: 20070228, end: 20070314
  4. ALBUTEROL [Concomitant]
     Route: 055
     Dates: start: 20070228, end: 20070328
  5. PRENATAL VITAMINS [Concomitant]
     Route: 048
     Dates: start: 20070612, end: 20070701

REACTIONS (1)
  - CONGENITAL CYSTIC LUNG [None]
